FAERS Safety Report 18121726 (Version 1)
Quarter: 2020Q3

REPORT INFORMATION
  Report Type: Spontaneous
  Country: FR (occurrence: FR)
  Receive Date: 20200806
  Receipt Date: 20200806
  Transmission Date: 20201103
  Serious: Yes (Hospitalization)
  Sender: FDA-Public Use
  Company Number: FR-CELGENEUS-FRA-20200800154

PATIENT
  Age: 50 Year
  Sex: Female
  Weight: 60 kg

DRUGS (2)
  1. CISPLATINE ACCORD [Concomitant]
     Active Substance: CISPLATIN
     Indication: BREAST CANCER
     Dosage: 70 MILLIGRAM/SQ. METER
     Route: 042
     Dates: start: 20171221, end: 20171221
  2. ABRAXANE [Suspect]
     Active Substance: PACLITAXEL
     Indication: BREAST CANCER
     Dosage: 175 MILLIGRAM/SQ. METER
     Route: 041
     Dates: start: 20171221, end: 20171221

REACTIONS (9)
  - Hypoxia [Recovered/Resolved]
  - Nausea [Not Recovered/Not Resolved]
  - Erythema [Recovered/Resolved]
  - Hypotension [Recovered/Resolved]
  - Vomiting [Not Recovered/Not Resolved]
  - Hyperthermia [Not Recovered/Not Resolved]
  - Infection [Not Recovered/Not Resolved]
  - Dysaesthesia [Not Recovered/Not Resolved]
  - Acute kidney injury [Not Recovered/Not Resolved]

NARRATIVE: CASE EVENT DATE: 20171221
